FAERS Safety Report 16042928 (Version 1)
Quarter: 2019Q1

REPORT INFORMATION
  Report Type: Spontaneous
  Country: US (occurrence: US)
  Receive Date: 20190306
  Receipt Date: 20190306
  Transmission Date: 20190418
  Serious: Yes (Other)
  Sender: FDA-Public Use
  Company Number: PHHY2019US048359

PATIENT
  Sex: Male
  Weight: 1.28 kg

DRUGS (7)
  1. DEXTROSE. [Concomitant]
     Active Substance: DEXTROSE
     Indication: PRODUCT USED FOR UNKNOWN INDICATION
     Dosage: 10 %, UNK
     Route: 065
  2. LATANOPROST. [Concomitant]
     Active Substance: LATANOPROST
     Indication: DEVELOPMENTAL GLAUCOMA
     Dosage: 0.005 %,QD (1 DROP IN BOTH EYES AT BEDTIME)
     Route: 047
  3. BETAXOLOL. [Concomitant]
     Active Substance: BETAXOLOL
     Indication: DEVELOPMENTAL GLAUCOMA
     Dosage: 0.25 %, QD (1 DROP IN BOTH EYES TWICE DAILY)
     Route: 065
  4. CALCIUM GLUCONATE. [Concomitant]
     Active Substance: CALCIUM GLUCONATE
     Indication: PRODUCT USED FOR UNKNOWN INDICATION
     Dosage: (2 MEQ/100 ML)
     Route: 065
  5. URSODIOL. [Concomitant]
     Active Substance: URSODIOL
     Indication: CHOLESTASIS
     Dosage: 10 MG/KG, Q12H
     Route: 048
  6. CAFFEINE CITRATE. [Concomitant]
     Active Substance: CAFFEINE CITRATE
     Indication: INFANTILE APNOEA
     Dosage: 5 MG/KG, QD
     Route: 042
  7. DORZOLAMIDE [Suspect]
     Active Substance: DORZOLAMIDE
     Indication: DEVELOPMENTAL GLAUCOMA
     Dosage: 2 %, BID (1 DROP IN BOTH EYES TWICE DAILY)
     Route: 047

REACTIONS (1)
  - Metabolic acidosis [Recovered/Resolved]
